FAERS Safety Report 6491792-9 (Version None)
Quarter: 2009Q4

REPORT INFORMATION
  Report Type: 
  Country: None (occurrence: None)
  Receive Date: 20091210
  Receipt Date: 20091201
  Transmission Date: 20100525
  Serious: No
  Sender: FDA-Public Use
  Company Number: 233382J09USA

PATIENT
  Age: 52 Year
  Sex: Female

DRUGS (4)
  1. REBIF [Suspect]
     Indication: MULTIPLE SCLEROSIS
     Dosage: 44 MCG, 3 IN 1 WEEKS, SUBCUTANEOUS
     Route: 058
     Dates: start: 20071121
  2. LOVENOX [Concomitant]
  3. POTASSIUM (POTASSIUM /00031401/) [Concomitant]
  4. COUMADIN [Concomitant]

REACTIONS (1)
  - NO ADVERSE EVENT [None]
